FAERS Safety Report 15106934 (Version 1)
Quarter: 2018Q3

REPORT INFORMATION
  Report Type: Report from Study
  Country: CO (occurrence: CO)
  Receive Date: 20180704
  Receipt Date: 20180704
  Transmission Date: 20181010
  Serious: Yes (Hospitalization)
  Sender: FDA-Public Use
  Company Number: CO-ASTELLAS-2018US028777

PATIENT
  Age: 41 Year
  Sex: Female

DRUGS (2)
  1. MYCOPHENOLATE [Concomitant]
     Active Substance: MYCOPHENOLIC ACID
     Indication: PRODUCT USED FOR UNKNOWN INDICATION
     Dosage: UNK UNK, UNKNOWN FREQ.
     Route: 048
  2. TACROLIMUS. [Suspect]
     Active Substance: TACROLIMUS
     Indication: RENAL TRANSPLANT
     Dosage: UNK UNK, UNKNOWN FREQ.
     Route: 048
     Dates: start: 201106, end: 201802

REACTIONS (3)
  - Product supply issue [Unknown]
  - Kidney transplant rejection [Unknown]
  - Renal transplant failure [Recovered/Resolved with Sequelae]

NARRATIVE: CASE EVENT DATE: 201801
